FAERS Safety Report 11169228 (Version 1)
Quarter: 2015Q2

REPORT INFORMATION
  Report Type: Spontaneous
  Country: US (occurrence: US)
  Receive Date: 20150605
  Receipt Date: 20150605
  Transmission Date: 20150821
  Serious: Yes (Death, Hospitalization, Other)
  Sender: FDA-Public Use
  Company Number: PHHY2015US065652

PATIENT
  Age: 62 Year
  Sex: Female
  Weight: 46.58 kg

DRUGS (2)
  1. ENOXAPARIN [Suspect]
     Active Substance: ENOXAPARIN
     Indication: THROMBOSIS PROPHYLAXIS
     Dosage: 40 MG, QD
     Route: 058
  2. CLOPIDOGREL [Concomitant]
     Active Substance: CLOPIDOGREL BISULFATE
     Indication: CORONARY ARTERY DISEASE
     Route: 065

REACTIONS (6)
  - Contusion [Unknown]
  - Abdominal wall haematoma [Unknown]
  - Respiratory failure [Fatal]
  - Waist circumference increased [Unknown]
  - Abdominal pain [Unknown]
  - Sepsis [Fatal]
